FAERS Safety Report 17992733 (Version 1)
Quarter: 2020Q3

REPORT INFORMATION
  Report Type: Spontaneous
  Country: PL (occurrence: PL)
  Receive Date: 20200708
  Receipt Date: 20200708
  Transmission Date: 20201103
  Serious: Yes (Other)
  Sender: FDA-Public Use
  Company Number: NVSC2020PL178318

PATIENT
  Age: 76 Year
  Sex: Female

DRUGS (1)
  1. LUTETIUM (177LU) OXODOTREOTIDE [Suspect]
     Active Substance: LUTETIUM OXODOTREOTIDE LU-177
     Indication: PARAGANGLION NEOPLASM MALIGNANT
     Dosage: UNK
     Route: 065

REACTIONS (3)
  - Paraganglion neoplasm malignant [Unknown]
  - Product use in unapproved indication [Unknown]
  - Malignant neoplasm progression [Unknown]
